FAERS Safety Report 9859596 (Version 2)
Quarter: 2014Q1

REPORT INFORMATION
  Report Type: Spontaneous
  Country: DK (occurrence: DK)
  Receive Date: 20140131
  Receipt Date: 20140206
  Transmission Date: 20141002
  Serious: Yes (Hospitalization)
  Sender: FDA-Public Use
  Company Number: PHHY2014DK008745

PATIENT
  Sex: Male

DRUGS (5)
  1. METFORMIN [Suspect]
     Indication: PRODUCT USED FOR UNKNOWN INDICATION
     Dosage: 1000 MG, BID
  2. SIMVASTATIN [Suspect]
     Indication: PRODUCT USED FOR UNKNOWN INDICATION
     Dosage: 40 MG, TID
  3. NOVOMIX 30 [Suspect]
     Indication: TYPE 2 DIABETES MELLITUS
  4. VICTOZA [Suspect]
     Indication: PRODUCT USED FOR UNKNOWN INDICATION
  5. HJERTEMAGNYL [Suspect]
     Indication: PRODUCT USED FOR UNKNOWN INDICATION

REACTIONS (6)
  - Visual acuity reduced [Recovered/Resolved]
  - Heart rate decreased [Recovered/Resolved]
  - Micturition urgency [Unknown]
  - Eye pruritus [Recovered/Resolved]
  - Dizziness [Recovered/Resolved]
  - Malaise [Unknown]
